FAERS Safety Report 20306304 (Version 1)
Quarter: 2022Q1

REPORT INFORMATION
  Report Type: Spontaneous
  Country: US (occurrence: US)
  Receive Date: 20220106
  Receipt Date: 20220106
  Transmission Date: 20220423
  Serious: No
  Sender: FDA-Public Use
  Company Number: US-MYLANLABS-2021M1090006

PATIENT
  Age: 80 Year
  Sex: Female

DRUGS (1)
  1. POTASSIUM CHLORIDE [Suspect]
     Active Substance: POTASSIUM CHLORIDE
     Indication: Electrolyte substitution therapy
     Dosage: 1 DOSAGE FORM, QD
     Route: 048

REACTIONS (4)
  - Anorectal disorder [Recovering/Resolving]
  - Constipation [Recovering/Resolving]
  - Diarrhoea [Recovering/Resolving]
  - Abdominal pain [Recovering/Resolving]
